FAERS Safety Report 4647885-1 (Version None)
Quarter: 2005Q2

REPORT INFORMATION
  Report Type: 
  Country: None (occurrence: None)
  Receive Date: 20050426
  Receipt Date: 20050413
  Transmission Date: 20051028
  Serious: Yes (Life-Threatening, Other)
  Sender: FDA-Public Use
  Company Number: MET-US-05-00016

PATIENT
  Age: 50 Year
  Sex: Female

DRUGS (3)
  1. FORTAMET [Suspect]
     Indication: DIABETES MELLITUS
     Dosage: 1000 MG PO QD
     Route: 048
     Dates: start: 20040101
  2. LITHIUM [Suspect]
  3. UNSPECIFIED PSYCHIATRIC MEDICATIONS [Concomitant]

REACTIONS (15)
  - BLOOD PRESSURE DECREASED [None]
  - BRADYPHRENIA [None]
  - CARDIOMEGALY [None]
  - CONSTIPATION [None]
  - CORONARY ARTERY INSUFFICIENCY [None]
  - DRUG ABUSER [None]
  - EMOTIONAL DISORDER [None]
  - GASTROOESOPHAGEAL REFLUX DISEASE [None]
  - HAEMOGLOBIN DECREASED [None]
  - NAIL TINEA [None]
  - OVERDOSE [None]
  - RENAL FAILURE ACUTE [None]
  - THERAPEUTIC AGENT TOXICITY [None]
  - TINEA PEDIS [None]
  - URINARY TRACT INFECTION [None]
